FAERS Safety Report 20747686 (Version 1)
Quarter: 2022Q2

REPORT INFORMATION
  Report Type: Spontaneous
  Country: US (occurrence: US)
  Receive Date: 20220425
  Receipt Date: 20220425
  Transmission Date: 20220720
  Serious: No
  Sender: FDA-Public Use
  Company Number: US-SA-SAC20220421000042

PATIENT
  Sex: Female

DRUGS (16)
  1. DUPIXENT [Suspect]
     Active Substance: DUPILUMAB
     Indication: Eczema
     Dosage: 300 MG, QOW
     Route: 058
  2. ATIVAN [Concomitant]
     Active Substance: LORAZEPAM
     Dosage: 1 MG
  3. CLOBETASOL [Concomitant]
     Active Substance: CLOBETASOL
  4. COLACE [Concomitant]
     Active Substance: DOCUSATE SODIUM
     Dosage: 100 MG
  5. DOXEPIN HCL [Concomitant]
     Active Substance: DOXEPIN HYDROCHLORIDE
     Dosage: 10 MG
  6. ELIDEL [Concomitant]
     Active Substance: PIMECROLIMUS
  7. KETOCONAZOLE [Concomitant]
     Active Substance: KETOCONAZOLE
     Dosage: 2 %
  8. MOBIC [Concomitant]
     Active Substance: MELOXICAM
     Dosage: 15 MG
  9. QUINAPRIL [Concomitant]
     Active Substance: QUINAPRIL
     Dosage: 5 MG
  10. TRESIBA [Concomitant]
     Active Substance: INSULIN DEGLUDEC
     Dosage: 100 IU/ML
  11. TYLENOL [Concomitant]
     Active Substance: ACETAMINOPHEN
     Dosage: 500 MG
  12. VITAMINS NOS [Concomitant]
     Active Substance: VITAMINS
     Dosage: 50 UG
  13. DICLOFENAC [Concomitant]
     Active Substance: DICLOFENAC
  14. ZOLOFT [Concomitant]
     Active Substance: SERTRALINE HYDROCHLORIDE
     Dosage: 100 MG
  15. HYDROCORTISONE [Concomitant]
     Active Substance: HYDROCORTISONE
  16. MAGNESIUM [Concomitant]
     Active Substance: MAGNESIUM
     Dosage: 250 MG

REACTIONS (2)
  - Therapeutic response decreased [Unknown]
  - Drug effective for unapproved indication [Unknown]
